FAERS Safety Report 19073574 (Version 2)
Quarter: 2021Q2

REPORT INFORMATION
  Report Type: Report from Study
  Country: US (occurrence: US)
  Receive Date: 20210330
  Receipt Date: 20210405
  Transmission Date: 20210717
  Serious: Yes (Other)
  Sender: FDA-Public Use
  Company Number: US-PFIZER INC-2021345687

PATIENT
  Age: 41 Year
  Sex: Female

DRUGS (6)
  1. DURAMORPH PF [Suspect]
     Active Substance: MORPHINE SULFATE
     Indication: BACK PAIN
  2. METHYLPREDNISOLONE ACETATE. [Suspect]
     Active Substance: METHYLPREDNISOLONE ACETATE
     Indication: SPINAL OSTEOARTHRITIS
     Dosage: 80 MG
     Route: 008
  3. METHYLPREDNISOLONE ACETATE. [Suspect]
     Active Substance: METHYLPREDNISOLONE ACETATE
     Indication: BACK PAIN
  4. BACTERIOSTATIC SODIUM CHLORIDE [Suspect]
     Active Substance: SODIUM CHLORIDE
     Indication: BACK PAIN
  5. BACTERIOSTATIC SODIUM CHLORIDE [Suspect]
     Active Substance: SODIUM CHLORIDE
     Indication: SPINAL OSTEOARTHRITIS
     Dosage: UNK
     Route: 008
  6. DURAMORPH PF [Suspect]
     Active Substance: MORPHINE SULFATE
     Indication: SPINAL OSTEOARTHRITIS
     Dosage: 1 MG/ML (8 MG/8 ML OF SALINE)
     Route: 008

REACTIONS (1)
  - Urinary retention [Unknown]
